FAERS Safety Report 9167972 (Version 1)
Quarter: 2013Q1

REPORT INFORMATION
  Report Type: Spontaneous
  Country: US (occurrence: US)
  Receive Date: 20130318
  Receipt Date: 20130318
  Transmission Date: 20140127
  Serious: No
  Sender: FDA-Public Use
  Company Number: US-009507513-1303USA006739

PATIENT
  Age: 80 Year
  Sex: Female

DRUGS (1)
  1. NASONEX [Suspect]
     Indication: HYPERSENSITIVITY

REACTIONS (2)
  - Fatigue [Not Recovered/Not Resolved]
  - Hypertension [Not Recovered/Not Resolved]
